FAERS Safety Report 10222165 (Version 1)
Quarter: 2014Q1

REPORT INFORMATION
  Report Type: Spontaneous
  Country: US (occurrence: None)
  Receive Date: 20140306
  Receipt Date: 20140306
  Transmission Date: 20141002
  Serious: Yes (Hospitalization)
  Sender: FDA-Public Use
  Company Number: 163-21880-13050041

PATIENT
  Age: 85 Year
  Sex: Female

DRUGS (9)
  1. REVLIMID (LENALIDOMIDE) (25 MILLIGRAM, CAPSULES) [Suspect]
     Indication: PLASMA CELL MYELOMA
     Route: 048
     Dates: start: 201102
  2. ACYCLOVIR (ACICLOVIR) [Concomitant]
  3. ADVAIR HFA (SERETIDE MITE) [Concomitant]
  4. DEXAMETHASONE (DEXAMETHASONE) [Concomitant]
  5. GAMMAGARD S/D (IMMUNOGLOBULIN HUMAN NORMAL) [Concomitant]
  6. LASIX (FUROSEMIDE) [Concomitant]
  7. METHIMAZOLE (THIAMAZOLE) [Concomitant]
  8. MULTAQ (DRONEDARONE HYDROCHLORDIE) [Concomitant]
  9. NEUPOGEN (FILGRASTIM) [Concomitant]

REACTIONS (1)
  - Dyspnoea [None]
